FAERS Safety Report 22367124 (Version 3)
Quarter: 2023Q2

REPORT INFORMATION
  Report Type: Report from Study
  Country: DE (occurrence: DE)
  Receive Date: 20230525
  Receipt Date: 20230627
  Transmission Date: 20230721
  Serious: Yes (Hospitalization, Other)
  Sender: FDA-Public Use
  Company Number: DE-BRISTOL-MYERS SQUIBB COMPANY-2023-066803

PATIENT
  Age: 70 Year
  Sex: Male

DRUGS (6)
  1. PEMETREXED [Suspect]
     Active Substance: PEMETREXED
     Indication: Non-small cell lung cancer
     Dosage: 445 MILLIGRAM, BIWEEKLY
     Route: 042
     Dates: start: 20230413, end: 20230510
  2. CARBOPLATIN [Suspect]
     Active Substance: CARBOPLATIN
     Indication: Non-small cell lung cancer
     Dosage: 445 MILLIGRAM, BIWEEKLY
     Route: 042
     Dates: start: 20230413, end: 20230510
  3. OPDIVO [Suspect]
     Active Substance: NIVOLUMAB
     Indication: Non-small cell lung cancer
     Dosage: 360 MILLIGRAM, BIWEEKLY
     Route: 042
     Dates: start: 20230413, end: 20230517
  4. YERVOY [Suspect]
     Active Substance: IPILIMUMAB
     Indication: Non-small cell lung cancer
     Dosage: 75 MILLIGRAM, BIWEEKLY
     Route: 042
     Dates: start: 20230413, end: 20230517
  5. YERVOY [Suspect]
     Active Substance: IPILIMUMAB
     Dosage: 92 MILLIGRAM, BIWEEKLY
     Route: 042
     Dates: start: 20230413, end: 20230517
  6. CANDESARTAN [Concomitant]
     Active Substance: CANDESARTAN
     Indication: Product used for unknown indication
     Dosage: UNK
     Route: 065
     Dates: start: 20230102

REACTIONS (2)
  - Autoimmune hepatitis [Unknown]
  - Off label use [Unknown]

NARRATIVE: CASE EVENT DATE: 20230429
